FAERS Safety Report 12272516 (Version 3)
Quarter: 2016Q2

REPORT INFORMATION
  Report Type: Spontaneous
  Country: US (occurrence: US)
  Receive Date: 20160415
  Receipt Date: 20160607
  Transmission Date: 20160815
  Serious: Yes (Other)
  Sender: FDA-Public Use
  Company Number: PHEH2016US008868

PATIENT
  Sex: Male

DRUGS (5)
  1. BACLOFEN. [Concomitant]
     Active Substance: BACLOFEN
     Indication: PRODUCT USED FOR UNKNOWN INDICATION
     Route: 065
  2. VITAMIN D [Concomitant]
     Active Substance: CHOLECALCIFEROL
     Indication: PRODUCT USED FOR UNKNOWN INDICATION
     Route: 065
  3. ZOLOFT [Concomitant]
     Active Substance: SERTRALINE HYDROCHLORIDE
     Indication: PRODUCT USED FOR UNKNOWN INDICATION
     Route: 065
  4. GABAPENTIN. [Concomitant]
     Active Substance: GABAPENTIN
     Indication: PRODUCT USED FOR UNKNOWN INDICATION
     Route: 065
  5. RECLAST [Suspect]
     Active Substance: ZOLEDRONIC ACID
     Indication: OSTEOPOROSIS
     Route: 042

REACTIONS (21)
  - Chromaturia [Unknown]
  - Pain [Unknown]
  - Agitation [Unknown]
  - Myalgia [Unknown]
  - Headache [Unknown]
  - Soft tissue necrosis [Recovered/Resolved]
  - Feeling abnormal [Unknown]
  - Impaired healing [Unknown]
  - Vertigo [Unknown]
  - Malaise [Unknown]
  - Blood calcium decreased [Unknown]
  - Abdominal distension [Unknown]
  - Influenza like illness [Unknown]
  - Abdominal pain [Unknown]
  - Swelling [Unknown]
  - Faeces discoloured [Unknown]
  - Skin lesion [Unknown]
  - Anxiety [Unknown]
  - Insomnia [Unknown]
  - Diarrhoea [Unknown]
  - Chills [Unknown]
